FAERS Safety Report 6172792-5 (Version None)
Quarter: 2009Q2

REPORT INFORMATION
  Report Type: 
  Country: None (occurrence: None)
  Receive Date: 20090428
  Receipt Date: 20090416
  Transmission Date: 20091009
  Serious: Yes (Other)
  Sender: FDA-Public Use
  Company Number: 2009AL001153

PATIENT
  Age: 32 Year
  Sex: Male
  Weight: 130.6359 kg

DRUGS (13)
  1. DIGOXIN [Suspect]
     Dosage: PO
     Route: 048
  2. VALIUM [Concomitant]
  3. ADVAIR HFA [Concomitant]
  4. XYLOPRIL [Concomitant]
  5. TOPROL-XL [Concomitant]
  6. ELAVIL [Concomitant]
  7. PAXIL [Concomitant]
  8. LISINOPRIL [Concomitant]
  9. COREG [Concomitant]
  10. ALLOPURINOL [Concomitant]
  11. ASPIRIN [Concomitant]
  12. ZOLOFT [Concomitant]
  13. ZONEGRAN [Concomitant]

REACTIONS (12)
  - ASTHENIA [None]
  - ASTHMA [None]
  - CARDIAC DISORDER [None]
  - CARPAL TUNNEL SYNDROME [None]
  - DIZZINESS [None]
  - EPILEPSY [None]
  - FEELING ABNORMAL [None]
  - HYPERHIDROSIS [None]
  - HYPOAESTHESIA ORAL [None]
  - LOWER RESPIRATORY TRACT INFECTION [None]
  - LUNG DISORDER [None]
  - URTICARIA [None]
